FAERS Safety Report 12979628 (Version 4)
Quarter: 2017Q1

REPORT INFORMATION
  Report Type: Spontaneous
  Country: US (occurrence: US)
  Receive Date: 20161128
  Receipt Date: 20170120
  Transmission Date: 20170428
  Serious: Yes (Hospitalization, Other)
  Sender: FDA-Public Use
  Company Number: US-PFIZER INC-2016550120

PATIENT
  Age: 80 Year
  Sex: Female

DRUGS (2)
  1. XALATAN [Suspect]
     Active Substance: LATANOPROST
     Indication: GLAUCOMA
     Dosage: UNK
     Dates: start: 2014
  2. AZOPT [Concomitant]
     Active Substance: BRINZOLAMIDE
     Dosage: UNK

REACTIONS (4)
  - Glaucoma [Not Recovered/Not Resolved]
  - Drug ineffective [Unknown]
  - Cataract [Unknown]
  - Condition aggravated [Not Recovered/Not Resolved]
